FAERS Safety Report 8457574-3 (Version None)
Quarter: 2012Q2

REPORT INFORMATION
  Report Type: 
  Country: None (occurrence: None)
  Receive Date: 20120622
  Receipt Date: 20120615
  Transmission Date: 20120825
  Serious: Yes (Hospitalization, Other)
  Sender: FDA-Public Use
  Company Number: US-BIOGENIDEC-2008BI016883

PATIENT
  Age: 55 Year
  Sex: Female

DRUGS (5)
  1. OXYBUTYNIN CHLORIDE [Concomitant]
  2. MECLIZINE [Concomitant]
     Route: 048
  3. AVONEX [Suspect]
     Indication: MULTIPLE SCLEROSIS
     Route: 030
     Dates: start: 20070129
  4. TEGRETOL [Concomitant]
     Route: 048
  5. ASPIRIN [Concomitant]

REACTIONS (4)
  - EPILEPSY [None]
  - PARTIAL SEIZURES [None]
  - CONVULSION [None]
  - FATIGUE [None]
